FAERS Safety Report 10566770 (Version 2)
Quarter: 2014Q4

REPORT INFORMATION
  Report Type: Report from Study
  Country: US (occurrence: US)
  Receive Date: 20141105
  Receipt Date: 20141115
  Transmission Date: 20150529
  Serious: Yes (Other)
  Sender: FDA-Public Use
  Company Number: US-AMGEN-USANI2014084003

PATIENT
  Age: 63 Year
  Sex: Female

DRUGS (6)
  1. PEGFILGRASTIM [Suspect]
     Active Substance: PEGFILGRASTIM
     Indication: PROPHYLAXIS
     Dosage: 6 MG, DAY 2 AFTER CHEMO
     Route: 058
     Dates: start: 20140918
  2. GRANISETRON [Concomitant]
     Active Substance: GRANISETRON
     Dosage: 1 MG, Q2WK
     Route: 042
     Dates: start: 20140903, end: 20141015
  3. FAMOTIDINE. [Concomitant]
     Active Substance: FAMOTIDINE
     Dosage: 20 MG, Q2WK
     Route: 042
     Dates: start: 20140903, end: 20141015
  4. TAXOL [Concomitant]
     Active Substance: PACLITAXEL
     Dosage: 279 MG, Q2WK
     Route: 042
     Dates: start: 20140903, end: 20141015
  5. DEXAMETHASONE. [Concomitant]
     Active Substance: DEXAMETHASONE
     Dosage: 40 MG, Q2WK
     Route: 042
     Dates: start: 20140903, end: 20141015
  6. DIPHENHYDRAMINE [Concomitant]
     Active Substance: DIPHENHYDRAMINE
     Dosage: 25 MG, Q2WK
     Route: 042
     Dates: start: 20140903, end: 20141015

REACTIONS (1)
  - Generalised tonic-clonic seizure [Recovered/Resolved]

NARRATIVE: CASE EVENT DATE: 20141018
